FAERS Safety Report 23939382 (Version 1)
Quarter: 2024Q2

REPORT INFORMATION
  Report Type: Report from Study
  Country: US (occurrence: None)
  Receive Date: 20240605
  Receipt Date: 20240605
  Transmission Date: 20240715
  Serious: Yes (Other)
  Sender: FDA-Public Use
  Company Number: 2024A127359

PATIENT
  Sex: Female

DRUGS (2)
  1. TRUQAP [Suspect]
     Active Substance: CAPIVASERTIB
     Indication: Breast cancer female
     Route: 048
     Dates: start: 20240419
  2. LYNPARZA [Concomitant]
     Active Substance: OLAPARIB

REACTIONS (3)
  - Blood glucose decreased [Unknown]
  - Diarrhoea [Unknown]
  - Dehydration [Unknown]
